FAERS Safety Report 10450480 (Version 2)
Quarter: 2014Q3

REPORT INFORMATION
  Report Type: Report from Study
  Country: US (occurrence: US)
  Receive Date: 20140912
  Receipt Date: 20140912
  Transmission Date: 20150326
  Serious: Yes (Hospitalization)
  Sender: FDA-Public Use
  Company Number: US-SA-2014SA122574

PATIENT
  Age: 31 Year
  Sex: Female

DRUGS (13)
  1. AMBRISENTAN [Concomitant]
     Active Substance: AMBRISENTAN
  2. K-DUR [Concomitant]
     Active Substance: POTASSIUM CHLORIDE
  3. TREPROSTINOL [Suspect]
     Active Substance: TREPROSTINIL
     Indication: COR PULMONALE CHRONIC
     Route: 055
     Dates: start: 20131030
  4. AMBIEN [Concomitant]
     Active Substance: ZOLPIDEM TARTRATE
  5. FOLIC ACID. [Concomitant]
     Active Substance: FOLIC ACID
  6. LASIX [Suspect]
     Active Substance: FUROSEMIDE
     Dosage: DOSE: 40 MG IN MORNING AND 20 MG IN AFTERNOON
     Dates: start: 20140612
  7. NEURONTIN [Concomitant]
     Active Substance: GABAPENTIN
  8. HYDROXYUREA. [Concomitant]
     Active Substance: HYDROXYUREA
  9. LORAZEPAM. [Concomitant]
     Active Substance: LORAZEPAM
  10. MULTIVITAMINS [Concomitant]
     Active Substance: VITAMINS
  11. PROTONIX [Concomitant]
     Active Substance: PANTOPRAZOLE SODIUM
  12. TREPROSTINOL [Suspect]
     Active Substance: TREPROSTINIL
     Indication: COR PULMONALE CHRONIC
     Route: 055
  13. LASIX [Suspect]
     Active Substance: FUROSEMIDE
     Dosage: DOSE: 40 MG IN MORNING AND 20 MG IN AFTERNOON
     Dates: end: 201406

REACTIONS (7)
  - Sepsis [Recovered/Resolved]
  - Drug dose omission [Unknown]
  - Sickle cell anaemia with crisis [Unknown]
  - Chest pain [Recovered/Resolved]
  - Pulmonary arterial hypertension [Unknown]
  - Hypokalaemia [Unknown]
  - Device related infection [Unknown]

NARRATIVE: CASE EVENT DATE: 2014
